FAERS Safety Report 20195871 (Version 5)
Quarter: 2022Q1

REPORT INFORMATION
  Report Type: Spontaneous
  Country: DE (occurrence: DE)
  Receive Date: 20211216
  Receipt Date: 20220121
  Transmission Date: 20220423
  Serious: Yes (Other)
  Sender: FDA-Public Use
  Company Number: DE-VER-202100064

PATIENT
  Age: 68 Year
  Sex: Male
  Weight: 97 kg

DRUGS (4)
  1. TRIPTORELIN PAMOATE [Suspect]
     Active Substance: TRIPTORELIN PAMOATE
     Indication: Prostate cancer
     Dosage: START DATE: 06-OCT-2021?1 VIAL, 1 AMPOULE AND 1 BLISTER CONTAINING 1 INJECTION SYRINGE AND 2 INJECTI
     Route: 030
  2. CANDESARTAN [Concomitant]
     Active Substance: CANDESARTAN
     Route: 065
  3. ENANTONE MONATS-DEPOT [Suspect]
     Active Substance: LEUPROLIDE ACETATE
     Indication: Product used for unknown indication
     Dosage: START DATE: MAY-2021?INJECTION
     Route: 065
     Dates: end: 20211006
  4. ENANTONE MONATS-DEPOT [Suspect]
     Active Substance: LEUPROLIDE ACETATE
     Indication: Product used for unknown indication
     Dosage: START DATE: MAY-2021
     Route: 065
     Dates: end: 202109

REACTIONS (3)
  - Tumour flare [Unknown]
  - Disease progression [Unknown]
  - Prostatic specific antigen increased [Not Recovered/Not Resolved]

NARRATIVE: CASE EVENT DATE: 20210101
